FAERS Safety Report 24102067 (Version 1)
Quarter: 2024Q3

REPORT INFORMATION
  Report Type: Report from Study
  Country: US (occurrence: US)
  Receive Date: 20240717
  Receipt Date: 20240717
  Transmission Date: 20241017
  Serious: Yes (Other)
  Sender: RANBAXY
  Company Number: US-SUN PHARMACEUTICAL INDUSTRIES LTD-2024R1-456481

PATIENT

DRUGS (3)
  1. TACROLIMUS [Suspect]
     Active Substance: TACROLIMUS
     Indication: Vanishing bile duct syndrome
     Dosage: UNKOWN
     Route: 065
  2. MYCOPHENOLATE SODIUM [Suspect]
     Active Substance: MYCOPHENOLATE SODIUM
     Indication: Vanishing bile duct syndrome
     Dosage: UNKOWN
     Route: 065
  3. PREDNISONE [Suspect]
     Active Substance: PREDNISONE
     Indication: Vanishing bile duct syndrome
     Dosage: UNKOWN
     Route: 048

REACTIONS (3)
  - Hepatitis C [Unknown]
  - Anastomotic stenosis [Unknown]
  - Vanishing bile duct syndrome [Unknown]
